FAERS Safety Report 8128321-X (Version None)
Quarter: 2012Q1

REPORT INFORMATION
  Report Type: 
  Country: None (occurrence: None)
  Receive Date: 20120210
  Receipt Date: 20120206
  Transmission Date: 20120608
  Serious: No
  Sender: FDA-Public Use
  Company Number: US-PFIZER INC-2012032877

PATIENT

DRUGS (4)
  1. DACARBAZINE [Suspect]
     Dosage: UNK
  2. ADRIAMYCIN PFS [Suspect]
     Dosage: UNK
  3. BLEOMYCIN SULFATE [Suspect]
     Dosage: UNK
  4. VINBLASTINE SULFATE [Suspect]
     Dosage: UNK

REACTIONS (2)
  - OEDEMA PERIPHERAL [None]
  - PAIN IN EXTREMITY [None]
